FAERS Safety Report 7449482-1 (Version None)
Quarter: 2011Q2

REPORT INFORMATION
  Report Type: 
  Country: None (occurrence: None)
  Receive Date: 20110502
  Receipt Date: 20110418
  Transmission Date: 20111010
  Serious: Yes (Hospitalization)
  Sender: FDA-Public Use
  Company Number: JP-BAYER-2011-021719

PATIENT
  Age: 71 Year
  Sex: Male
  Weight: 59.7 kg

DRUGS (14)
  1. ACETYLSALICYLIC ACID SRT [Interacting]
     Indication: ACUTE CORONARY SYNDROME
     Dates: end: 20100812
  2. CLOPIDOGREL [Interacting]
     Indication: ACUTE CORONARY SYNDROME
  3. TELMISARTAN [Concomitant]
  4. LANSOPRAZOLE [Concomitant]
  5. ISOSORBIDE DINITRATE [Concomitant]
  6. CLOPIDOGREL [Interacting]
     Dates: end: 20100812
  7. INFLUENZA HA VACCINE [Concomitant]
  8. ACETYLSALICYLIC ACID SRT [Interacting]
  9. FERROUS SULFATE TAB [Concomitant]
  10. ROSUVASTATIN CALCIUM [Concomitant]
  11. RIVAROXABAN [Suspect]
     Indication: ACUTE CORONARY SYNDROME
     Dosage: DOSAGE FORM: TABLET, 2.5MG OR 5MG DAILY
     Route: 048
     Dates: start: 20100819
  12. CARVEDILOL [Concomitant]
  13. BENIDIPINE HYDROCHLORIDE [Concomitant]
  14. HEPARIN SODIUM [Concomitant]

REACTIONS (3)
  - INTESTINAL HAEMORRHAGE [None]
  - POST PROCEDURAL HAEMORRHAGE [None]
  - ANAL FISTULA [None]
